FAERS Safety Report 21753763 (Version 1)
Quarter: 2022Q4

REPORT INFORMATION
  Report Type: Spontaneous
  Country: JP (occurrence: JP)
  Receive Date: 20221220
  Receipt Date: 20221220
  Transmission Date: 20230112
  Serious: Yes (Other)
  Sender: FDA-Public Use
  Company Number: JP-Merck Healthcare KGaA-9364023

PATIENT
  Age: 76 Year
  Sex: Male

DRUGS (14)
  1. ERBITUX [Suspect]
     Active Substance: CETUXIMAB
     Indication: Tongue neoplasm malignant stage unspecified
     Dosage: UNK UNK, UNKNOWN
     Route: 065
     Dates: start: 202109, end: 202110
  2. ERBITUX [Suspect]
     Active Substance: CETUXIMAB
     Dosage: UNK UNK, UNKNOWN
     Route: 065
     Dates: start: 20211005, end: 20211124
  3. ERBITUX [Suspect]
     Active Substance: CETUXIMAB
     Dosage: UNK UNK, UNKNOWN
     Route: 065
     Dates: start: 20211207, end: 20220111
  4. ERBITUX [Suspect]
     Active Substance: CETUXIMAB
     Dosage: UNK UNK, WEEKLY (1/W)
     Route: 041
     Dates: start: 202206
  5. ERBITUX [Suspect]
     Active Substance: CETUXIMAB
     Dosage: 250 MG/M2, UNKNOWN
     Route: 065
     Dates: start: 20220728, end: 20220728
  6. ERBITUX [Suspect]
     Active Substance: CETUXIMAB
     Dosage: 120 MG/M2, WEEKLY (1/W)
     Route: 065
     Dates: start: 20220823, end: 20221021
  7. PACLITAXEL [Suspect]
     Active Substance: PACLITAXEL
     Indication: Tongue neoplasm malignant stage unspecified
     Dosage: UNK UNK, WEEKLY (1/W)
     Route: 065
     Dates: start: 202109, end: 202110
  8. PACLITAXEL [Suspect]
     Active Substance: PACLITAXEL
     Dosage: 390 MG, WEEKLY (1/W)
     Route: 041
     Dates: start: 202206, end: 20221021
  9. PACLITAXEL [Suspect]
     Active Substance: PACLITAXEL
     Dosage: UNK UNK, UNKNOWN
     Route: 065
     Dates: start: 20211005, end: 20211124
  10. PACLITAXEL [Suspect]
     Active Substance: PACLITAXEL
     Dosage: UNK UNK, UNKNOWN
     Route: 065
     Dates: start: 20211207, end: 20220111
  11. PACLITAXEL [Suspect]
     Active Substance: PACLITAXEL
     Dosage: UNK UNK, WEEKLY (1/W)
     Route: 041
     Dates: start: 202206
  12. PACLITAXEL [Suspect]
     Active Substance: PACLITAXEL
     Dosage: 80 MG/M2, UNKNOWN
     Route: 065
     Dates: start: 20220728, end: 20220728
  13. PACLITAXEL [Suspect]
     Active Substance: PACLITAXEL
     Dosage: 390 MG, WEEKLY (1/W)
     Route: 065
     Dates: start: 20220823, end: 20221021
  14. PACLITAXEL [Suspect]
     Active Substance: PACLITAXEL
     Dosage: 80 MG/M2, UNKNOWN
     Route: 065
     Dates: start: 20221202

REACTIONS (1)
  - Organising pneumonia [Not Recovered/Not Resolved]

NARRATIVE: CASE EVENT DATE: 20221027
